FAERS Safety Report 8721974 (Version 2)
Quarter: 2012Q4

REPORT INFORMATION
  Report Type: 
  Country: US (occurrence: US)
  Receive Date: 20120814
  Receipt Date: 20121017
  Transmission Date: 20130627
  Serious: Yes (Other)
  Sender: FDA-Public Use
  Company Number: US-PFIZER INC-2012194919

PATIENT
  Age: 35 Year
  Sex: Male
  Weight: 97.05 kg

DRUGS (2)
  1. CHANTIX [Suspect]
     Indication: SMOKING CESSATION THERAPY
     Dosage: 0.5 mg, 1x/day
     Route: 048
     Dates: start: 20120805
  2. CHANTIX [Suspect]
     Dosage: 0.5 mg, UNK
     Route: 048
     Dates: end: 20120809

REACTIONS (6)
  - Self-injurious ideation [Unknown]
  - Aggression [Unknown]
  - Hostility [Unknown]
  - Agitation [Unknown]
  - Anger [Unknown]
  - Fear [Unknown]
